FAERS Safety Report 12692473 (Version 1)
Quarter: 2016Q3

REPORT INFORMATION
  Report Type: Spontaneous
  Country: US (occurrence: US)
  Receive Date: 20160829
  Receipt Date: 20160829
  Transmission Date: 20161109
  Serious: No
  Sender: FDA-Public Use
  Company Number: US-ASTRAZENECA-2016SE90806

PATIENT
  Sex: Female

DRUGS (4)
  1. BYDUREON [Concomitant]
     Active Substance: EXENATIDE
  2. BRILINTA [Suspect]
     Active Substance: TICAGRELOR
     Indication: CORONARY ARTERY STENOSIS
     Route: 048
  3. BYETTA [Concomitant]
     Active Substance: EXENATIDE
  4. MYALEPT [Concomitant]
     Active Substance: METRELEPTIN

REACTIONS (2)
  - Confusional state [Unknown]
  - Mental impairment [Unknown]
